FAERS Safety Report 9956955 (Version 1)
Quarter: 2014Q1

REPORT INFORMATION
  Report Type: Report from Study
  Country: US (occurrence: US)
  Receive Date: 20140304
  Receipt Date: 20140304
  Transmission Date: 20141002
  Serious: No
  Sender: FDA-Public Use
  Company Number: US-ABBVIE-13P-163-1097413-00

PATIENT
  Age: 54 Year
  Sex: Male

DRUGS (4)
  1. HUMIRA [Suspect]
     Indication: CROHN^S DISEASE
     Dates: start: 20130131
  2. ALLEGRA D [Concomitant]
     Indication: HYPERSENSITIVITY
     Dosage: DAILY
  3. NEXIUM [Concomitant]
     Indication: GASTROOESOPHAGEAL REFLUX DISEASE
     Dosage: DAILY
  4. UNKNOWN WATER PILL [Concomitant]
     Indication: JOINT SWELLING
     Dosage: DAILY

REACTIONS (1)
  - Injection site pain [Recovered/Resolved]
